FAERS Safety Report 5986264-1 (Version None)
Quarter: 2008Q4

REPORT INFORMATION
  Report Type: 
  Country: None (occurrence: None)
  Receive Date: 20081209
  Receipt Date: 20081204
  Transmission Date: 20090506
  Serious: Yes (Death, Life-Threatening, Hospitalization)
  Sender: FDA-Public Use
  Company Number: AT-BRISTOL-MYERS SQUIBB COMPANY-14373260

PATIENT
  Age: 65 Year
  Sex: Female

DRUGS (18)
  1. ORENCIA [Suspect]
     Indication: OSTEOARTHRITIS
     Dosage: CYCLE:6 2NDINFUSION:OCT08 INITIATED ON 20MAY08, GIVEN ON 03JUN,17JUN,15JUL,14AUG,26SEP08.
     Route: 042
     Dates: start: 20080520
  2. ORENCIA [Suspect]
     Indication: POLYARTHRITIS
     Dosage: CYCLE:6 2NDINFUSION:OCT08 INITIATED ON 20MAY08, GIVEN ON 03JUN,17JUN,15JUL,14AUG,26SEP08.
     Route: 042
     Dates: start: 20080520
  3. PREDNISOLONE [Suspect]
     Dosage: TAKEN SINCE YEARS
  4. ARAVA [Suspect]
     Dates: start: 20080912
  5. ACETYLSALICYLIC ACID SRT [Concomitant]
     Route: 048
  6. ACETAMINOPHEN [Concomitant]
     Route: 048
  7. SPIRONOLACTONE [Concomitant]
     Route: 048
  8. ACARBOSE [Concomitant]
     Route: 048
  9. FUROSEMIDE [Concomitant]
     Route: 048
  10. GLIMEPIRIDE [Concomitant]
     Route: 048
  11. ENOXAPARIN SODIUM [Concomitant]
  12. BISOPROLOL FUMARATE [Concomitant]
     Route: 048
  13. LOSARTAN POTASSIUM [Concomitant]
     Route: 048
  14. PANTOPRAZOLE SODIUM [Concomitant]
     Route: 048
  15. LEVOTHYROXINE SODIUM [Concomitant]
     Route: 048
  16. AMLODIPINE [Concomitant]
     Route: 048
  17. CLOPIDOGREL BISULFATE [Concomitant]
     Route: 048
  18. EZETIMIBE + SIMVASTATIN [Concomitant]
     Dosage: EZETIMIBE 10MG , SIMVASTATIN 10MG
     Route: 048

REACTIONS (2)
  - MULTI-ORGAN FAILURE [None]
  - PNEUMONIA [None]
